FAERS Safety Report 16241346 (Version 1)
Quarter: 2019Q2

REPORT INFORMATION
  Report Type: Spontaneous
  Country: JP (occurrence: JP)
  Receive Date: 20190426
  Receipt Date: 20190426
  Transmission Date: 20190711
  Serious: Yes (Other)
  Sender: FDA-Public Use
  Company Number: JP-LUPIN PHARMACEUTICALS INC.-2019-01909

PATIENT
  Age: 70 Year
  Sex: Female

DRUGS (2)
  1. AMPHOTERICIN B. [Concomitant]
     Active Substance: AMPHOTERICIN B
     Indication: DISSEMINATED CRYPTOCOCCOSIS
     Dosage: 100 MILLIGRAM, QD
     Route: 065
  2. ANCOTIL 500 MG TABLET [Suspect]
     Active Substance: FLUCYTOSINE
     Indication: DISSEMINATED CRYPTOCOCCOSIS
     Dosage: 500 MILLIGRAM, QID
     Route: 065

REACTIONS (1)
  - Pancytopenia [Unknown]
